FAERS Safety Report 4961625-8 (Version None)
Quarter: 2006Q1

REPORT INFORMATION
  Report Type: 
  Country: None (occurrence: None)
  Receive Date: 20060329
  Receipt Date: 20060314
  Transmission Date: 20060701
  Serious: Yes (Other)
  Sender: FDA-Public Use
  Company Number: 13750

PATIENT
  Age: 81 Year
  Sex: Female

DRUGS (3)
  1. METHOTREXATE [Suspect]
     Dosage: 25 MG WEEKLY
  2. FOLIC ACID [Concomitant]
  3. PREDNISONE 50MG TAB [Concomitant]

REACTIONS (25)
  - BLINDNESS [None]
  - BLOOD CREATININE INCREASED [None]
  - BLOOD UREA INCREASED [None]
  - CHOROIDAL HAEMORRHAGE [None]
  - EYE DISORDER [None]
  - GLAUCOMA [None]
  - HEADACHE [None]
  - HYPHAEMA [None]
  - INTERMITTENT CLAUDICATION [None]
  - LETHARGY [None]
  - LYMPHOCYTIC INFILTRATION [None]
  - LYMPHOMA [None]
  - MACROPHAGES INCREASED [None]
  - MACULAR DEGENERATION [None]
  - NECROTISING RETINITIS [None]
  - OPTIC ATROPHY [None]
  - OPTIC ISCHAEMIC NEUROPATHY [None]
  - PAIN OF SKIN [None]
  - PAPILLOEDEMA [None]
  - RENAL IMPAIRMENT [None]
  - RETINAL ARTERY OCCLUSION [None]
  - TEMPORAL ARTERITIS [None]
  - THROMBOCYTHAEMIA [None]
  - VISUAL ACUITY REDUCED [None]
  - WEIGHT DECREASED [None]
